FAERS Safety Report 12707065 (Version 1)
Quarter: 2016Q3

REPORT INFORMATION
  Report Type: Report from Study
  Country: US (occurrence: US)
  Receive Date: 20160901
  Receipt Date: 20160901
  Transmission Date: 20161109
  Serious: Yes (Hospitalization)
  Sender: FDA-Public Use
  Company Number: US-PFIZER INC-2012022236

PATIENT
  Age: 55 Year
  Sex: Male
  Weight: 70.3 kg

DRUGS (14)
  1. LORTAB [Concomitant]
     Active Substance: ACETAMINOPHEN\HYDROCODONE BITARTRATE
     Indication: PAIN
     Dosage: 10 MG, TID PRN
     Route: 048
     Dates: start: 20070411
  2. STRATTERA [Concomitant]
     Active Substance: ATOMOXETINE HYDROCHLORIDE
     Indication: DEPRESSION
     Dosage: 40 MG ONCE DAILY EVERY MORNING
     Route: 048
     Dates: start: 20100406
  3. IBUPROFEN. [Suspect]
     Active Substance: IBUPROFEN
     Indication: OSTEOARTHRITIS
     Dosage: UNK
     Route: 048
     Dates: start: 20071011, end: 20100720
  4. IBUPROFEN. [Suspect]
     Active Substance: IBUPROFEN
     Indication: RHEUMATOID ARTHRITIS
  5. CALCIUM MEFOLINATE [Concomitant]
     Active Substance: CALCIUM MEFOLINATE
     Indication: DEPRESSION
     Dosage: 7.5 MG, 1X/DAY
     Route: 048
     Dates: start: 20091104
  6. ARMODAFINIL. [Concomitant]
     Active Substance: ARMODAFINIL
     Indication: DEPRESSION
     Dosage: 150 MG, BID PRN
     Route: 048
     Dates: start: 20090805
  7. ZYPREXA [Concomitant]
     Active Substance: OLANZAPINE
     Indication: DEPRESSION
     Dosage: 10 MG, QHS
     Route: 048
     Dates: start: 20090124
  8. COZAAR [Concomitant]
     Active Substance: LOSARTAN POTASSIUM
     Indication: HYPERTENSION
     Dosage: 100 MG, 1X/DAY
     Route: 048
     Dates: start: 20080124
  9. MEVACOR [Concomitant]
     Active Substance: LOVASTATIN
     Indication: HYPERLIPIDAEMIA
     Dosage: 20 MG, 1X/DAY
     Route: 048
     Dates: start: 20080118
  10. TENORMIN [Concomitant]
     Active Substance: ATENOLOL
     Indication: HYPERTENSION
     Dosage: 25 MG, 1X/DAY
     Route: 048
     Dates: start: 20050610
  11. VALIUM [Concomitant]
     Active Substance: DIAZEPAM
     Indication: INSOMNIA
     Dosage: 10 MG, QID PRN
     Route: 048
     Dates: start: 20080618
  12. VALIUM [Concomitant]
     Active Substance: DIAZEPAM
     Indication: ANXIETY
  13. NEXIUM [Concomitant]
     Active Substance: ESOMEPRAZOLE MAGNESIUM
     Indication: PROPHYLAXIS
     Dosage: 40 MG, DAILY
     Route: 048
     Dates: start: 20071010, end: 20100720
  14. CYMBALTA [Concomitant]
     Active Substance: DULOXETINE HYDROCHLORIDE
     Indication: DEPRESSION
     Dosage: 60 MG, 1X/DAY
     Route: 048
     Dates: start: 20081212

REACTIONS (2)
  - Coronary artery disease [Recovered/Resolved]
  - Condition aggravated [Recovered/Resolved]

NARRATIVE: CASE EVENT DATE: 20100720
